FAERS Safety Report 8240389-9 (Version None)
Quarter: 2012Q1

REPORT INFORMATION
  Report Type: 
  Country: None (occurrence: None)
  Receive Date: 20120328
  Receipt Date: 20120322
  Transmission Date: 20120608
  Serious: Yes (Hospitalization)
  Sender: FDA-Public Use
  Company Number: JP-VERTEX PHARMACEUTICALS INC.-AE-2012-004265

PATIENT
  Age: 50 Year
  Sex: Male

DRUGS (6)
  1. RIBAVIRIN [Concomitant]
     Route: 048
     Dates: start: 20120314
  2. TELAVIC (TELAPREVIR) [Suspect]
     Indication: HEPATITIS C
     Route: 048
     Dates: start: 20120203, end: 20120306
  3. TELAVIC (TELAPREVIR) [Suspect]
     Route: 048
     Dates: start: 20120307
  4. RIBAVIRIN [Concomitant]
     Indication: HEPATITIS C
     Route: 048
     Dates: start: 20120203, end: 20120307
  5. RIBAVIRIN [Concomitant]
     Route: 048
     Dates: start: 20120308, end: 20120313
  6. PEGINTERFERON [Concomitant]
     Indication: HEPATITIS C
     Route: 058
     Dates: start: 20120203

REACTIONS (2)
  - ABDOMINAL DISCOMFORT [None]
  - MALAISE [None]
